FAERS Safety Report 9272424 (Version 1)
Quarter: 2013Q2

REPORT INFORMATION
  Report Type: Spontaneous
  Country: US (occurrence: US)
  Receive Date: 20130506
  Receipt Date: 20130506
  Transmission Date: 20140414
  Serious: Yes (Hospitalization)
  Sender: FDA-Public Use
  Company Number: US-ASTRAZENECA-2013SE29798

PATIENT
  Age: 45 Year
  Sex: Male

DRUGS (7)
  1. LISINOPRIL [Suspect]
     Route: 048
  2. TOPROL XL [Suspect]
     Route: 048
  3. OMEPRAZOLE [Suspect]
     Route: 048
  4. CRESTOR [Suspect]
     Route: 048
  5. BRILINTA [Suspect]
     Indication: STENT PLACEMENT
     Route: 048
     Dates: start: 201205
  6. HYDROCHLOROTHIAZIDE [Suspect]
     Route: 065
  7. ASPIRIN [Concomitant]

REACTIONS (1)
  - Pain in extremity [Unknown]
